FAERS Safety Report 6791003-0 (Version None)
Quarter: 2010Q2

REPORT INFORMATION
  Report Type: 
  Country: None (occurrence: None)
  Receive Date: 20100624
  Receipt Date: 20100617
  Transmission Date: 20101027
  Serious: Yes (Life-Threatening, Hospitalization, Other)
  Sender: FDA-Public Use
  Company Number: JP-ABBOTT-09P-087-0613988-00

PATIENT
  Sex: Female

DRUGS (10)
  1. HUMIRA [Suspect]
     Indication: RHEUMATOID ARTHRITIS
     Route: 058
     Dates: start: 20090811, end: 20091124
  2. METHOTREXATE [Concomitant]
     Indication: RHEUMATOID ARTHRITIS
     Route: 048
     Dates: end: 20091207
  3. PREDNISOLONE [Concomitant]
     Indication: RHEUMATOID ARTHRITIS
     Route: 048
     Dates: end: 20090917
  4. PREDNISOLONE [Concomitant]
     Route: 048
     Dates: start: 20090917, end: 20091027
  5. PREDNISOLONE [Concomitant]
     Route: 048
     Dates: start: 20091027
  6. INDOMETACIN FARNESIL [Concomitant]
     Indication: RHEUMATOID ARTHRITIS
     Dates: end: 20091208
  7. FAMOTIDINE [Concomitant]
     Indication: PROPHYLAXIS
     Dosage: 20MG DAILY
     Dates: end: 20091208
  8. ATROVASTATIN CALCIUM HYDRATE [Concomitant]
     Indication: DRUG USE FOR UNKNOWN INDICATION
     Dosage: 5MG DAILY
     Dates: end: 20091208
  9. SODIUM RISEDRONATE HYDRATE [Concomitant]
     Indication: DRUG USE FOR UNKNOWN INDICATION
     Dosage: 17.5MG/WK
     Dates: end: 20091208
  10. SULFAMETHOXAZOLE AND TRIMETHOPRIM [Concomitant]
     Indication: PROPHYLAXIS
     Dates: end: 20091208

REACTIONS (3)
  - ARTHRITIS BACTERIAL [None]
  - RENAL FAILURE ACUTE [None]
  - SEPTIC SHOCK [None]
